FAERS Safety Report 12224340 (Version 2)
Quarter: 2016Q2

REPORT INFORMATION
  Report Type: Spontaneous
  Country: US (occurrence: US)
  Receive Date: 20160331
  Receipt Date: 20160516
  Transmission Date: 20160815
  Serious: Yes (Hospitalization)
  Sender: FDA-Public Use
  Company Number: US-ASTRAZENECA-2016SE32383

PATIENT
  Age: 902 Month
  Sex: Female
  Weight: 88.5 kg

DRUGS (2)
  1. SYMBICORT [Suspect]
     Active Substance: BUDESONIDE\FORMOTEROL FUMARATE DIHYDRATE
     Indication: CHRONIC OBSTRUCTIVE PULMONARY DISEASE
     Dosage: SYMBICORT 160-4.5 MCG, 2 PUFFS, TWICE A DAY
     Route: 055
     Dates: start: 2012
  2. SYMBICORT [Suspect]
     Active Substance: BUDESONIDE\FORMOTEROL FUMARATE DIHYDRATE
     Indication: CHRONIC OBSTRUCTIVE PULMONARY DISEASE
     Dosage: 160/4.5 MCG 120 INHALATIONS, DAILY
     Route: 055
     Dates: start: 2012

REACTIONS (8)
  - Dyspnoea [Unknown]
  - Chronic obstructive pulmonary disease [Recovering/Resolving]
  - Gait disturbance [Unknown]
  - Anxiety [Unknown]
  - Drug dose omission [Unknown]
  - Wrong technique in product usage process [Unknown]
  - Product quality issue [Unknown]
  - Nervousness [Unknown]

NARRATIVE: CASE EVENT DATE: 201601
